FAERS Safety Report 15225715 (Version 17)
Quarter: 2022Q4

REPORT INFORMATION
  Report Type: Spontaneous
  Country: US (occurrence: US)
  Receive Date: 20180801
  Receipt Date: 20221220
  Transmission Date: 20230113
  Serious: No
  Sender: FDA-Public Use
  Company Number: US-PFIZER INC-2018305349

PATIENT
  Age: 65 Year
  Sex: Female
  Weight: 48.98 kg

DRUGS (7)
  1. PREMARIN [Suspect]
     Active Substance: ESTROGENS, CONJUGATED
     Indication: Menopause
     Dosage: 0.625 MG, (ADMINISTER AND SQUEEZE THE TUBE AND LIE ON THE BED)
     Route: 067
     Dates: start: 2008
  2. PREMARIN [Suspect]
     Active Substance: ESTROGENS, CONJUGATED
     Indication: Vulvovaginal dryness
     Dosage: 0.625 MG
     Dates: start: 201807
  3. PREMARIN [Suspect]
     Active Substance: ESTROGENS, CONJUGATED
     Dosage: 0.625 MG, THREE TIMES A WEEK
     Route: 067
     Dates: start: 20190206
  4. PREMARIN [Suspect]
     Active Substance: ESTROGENS, CONJUGATED
     Dosage: 0.5 G (PV 3X/ WEEK), NDC NUMBER: 0046-0872-21
     Route: 067
  5. SYNTHROID [Concomitant]
     Active Substance: LEVOTHYROXINE SODIUM
     Indication: Hypothyroidism
     Dosage: 88 UG, DAILY (NDC NUMBER: 0074-6624-90)
     Route: 048
     Dates: start: 1980
  6. CLONAZEPAM [Concomitant]
     Active Substance: CLONAZEPAM
     Indication: Muscle spasms
     Dosage: 0.5 MG, 1X/DAY
     Route: 048
     Dates: start: 1990
  7. PREMARIN [Concomitant]
     Active Substance: ESTROGENS, CONJUGATED
     Dosage: UNK

REACTIONS (15)
  - Drug ineffective [Unknown]
  - Off label use [Unknown]
  - Product dispensing error [Unknown]
  - Vulvovaginal burning sensation [Not Recovered/Not Resolved]
  - Vaginal haemorrhage [Unknown]
  - Pain [Unknown]
  - Weight decreased [Unknown]
  - Insomnia [Unknown]
  - Malaise [Unknown]
  - Alopecia [Unknown]
  - Renal disorder [Unknown]
  - Gastrointestinal disorder [Unknown]
  - Hypoglycaemia [Unknown]
  - Circadian rhythm sleep disorder [Unknown]
  - Illness [Unknown]

NARRATIVE: CASE EVENT DATE: 20180723
